FAERS Safety Report 16406444 (Version 9)
Quarter: 2021Q2

REPORT INFORMATION
  Report Type: Spontaneous
  Country: DE (occurrence: DE)
  Receive Date: 20190607
  Receipt Date: 20210413
  Transmission Date: 20210716
  Serious: Yes (Other)
  Sender: FDA-Public Use
  Company Number: PHHY2019DE131175

PATIENT
  Sex: Male

DRUGS (23)
  1. OMACOR [Concomitant]
     Active Substance: OMEGA-3-ACID ETHYL ESTERS
     Indication: PRODUCT USED FOR UNKNOWN INDICATION
     Dosage: UNK UNK, QD
     Route: 065
  2. VALSACOR [Concomitant]
     Active Substance: VALSARTAN
     Dosage: UNK
     Route: 065
     Dates: start: 20181022
  3. VALSACOR [Concomitant]
     Active Substance: VALSARTAN
     Dosage: UNK
     Route: 065
     Dates: start: 20190401
  4. LANTUS SOLOSTAR [Concomitant]
     Active Substance: INSULIN GLARGINE
     Indication: PRODUCT USED FOR UNKNOWN INDICATION
     Dosage: 14 OT, QD (EVENING)
     Route: 065
  5. VALSARTAN 1A PHARMA [Suspect]
     Active Substance: VALSARTAN
     Indication: HYPERTENSION
     Dosage: 1 DF, QD (1X 160 MG/25 MG IN THE MORNING)
     Route: 065
     Dates: start: 20180516, end: 20180716
  6. VALSARTAN 1A PHARMA [Suspect]
     Active Substance: VALSARTAN
     Indication: MYOCARDIAL ISCHAEMIA
     Dosage: 160/12.5 MG
     Route: 065
  7. XIGDUO XR [Concomitant]
     Active Substance: DAPAGLIFLOZIN PROPANEDIOL\METFORMIN HYDROCHLORIDE
     Indication: PRODUCT USED FOR UNKNOWN INDICATION
     Dosage: 1 DF, BID (5/1000 MG), BID, MORNINGS AND EVENING)
     Route: 065
  8. ASPIRINE PROTECT [Concomitant]
     Active Substance: ASPIRIN
     Indication: PRODUCT USED FOR UNKNOWN INDICATION
     Dosage: 100 MG, QD (MORNING)
     Route: 065
  9. JEPROLOL [Concomitant]
     Indication: PRODUCT USED FOR UNKNOWN INDICATION
     Dosage: 100 MG
     Route: 065
  10. TAMSULOSIN WINTHROP [Concomitant]
     Active Substance: TAMSULOSIN HYDROCHLORIDE
     Indication: PRODUCT USED FOR UNKNOWN INDICATION
     Dosage: 14 OT, QD (EVENING)
     Route: 065
  11. SIMVABETA [Concomitant]
     Active Substance: SIMVASTATIN
     Indication: PRODUCT USED FOR UNKNOWN INDICATION
     Dosage: 40 MG, QD
     Route: 065
  12. INEGY [Concomitant]
     Active Substance: EZETIMIBE\SIMVASTATIN
     Indication: PRODUCT USED FOR UNKNOWN INDICATION
     Dosage: 1 DF, QD (10/40)
     Route: 065
  13. METOPROLOL RATIOPHARM [Concomitant]
     Active Substance: METOPROLOL
     Indication: PRODUCT USED FOR UNKNOWN INDICATION
     Dosage: 1 DF, BID (0.5X 100 MG BID (MORNING AND EVENING)
     Route: 065
  14. LIPIDIL [Concomitant]
     Active Substance: FENOFIBRATE
     Indication: PRODUCT USED FOR UNKNOWN INDICATION
     Dosage: UNK
     Route: 065
  15. JANUVIA [Concomitant]
     Active Substance: SITAGLIPTIN PHOSPHATE
     Indication: PRODUCT USED FOR UNKNOWN INDICATION
     Dosage: 100 MG, QD (MORNING)
     Route: 065
  16. VENTOLAIR [Concomitant]
     Active Substance: BECLOMETHASONE DIPROPIONATE
     Indication: PRODUCT USED FOR UNKNOWN INDICATION
     Dosage: UNK
     Route: 065
  17. PANTOPRAZOL BIOMO [Concomitant]
     Indication: PRODUCT USED FOR UNKNOWN INDICATION
     Dosage: 20 MG, QD
     Route: 065
  18. ARMOLIPID [Concomitant]
     Indication: PRODUCT USED FOR UNKNOWN INDICATION
     Dosage: UNK
     Route: 065
  19. VALSACOR [Concomitant]
     Active Substance: VALSARTAN
     Indication: PRODUCT USED FOR UNKNOWN INDICATION
     Dosage: 1 DF
     Route: 048
     Dates: start: 20180716
  20. PROSTAGUTT FORTE [Concomitant]
     Active Substance: HERBALS
     Indication: PRODUCT USED FOR UNKNOWN INDICATION
     Dosage: 280 MG (160/120 MG), UNK
     Route: 065
  21. VALSACOR [Concomitant]
     Active Substance: VALSARTAN
     Dosage: UNK
     Route: 065
     Dates: start: 20181218
  22. INSULIN GLULISINE [Concomitant]
     Active Substance: INSULIN GLULISINE
     Indication: PRODUCT USED FOR UNKNOWN INDICATION
     Dosage: UNK
     Route: 065
  23. LANTUS SOLOSTAR [Concomitant]
     Active Substance: INSULIN GLARGINE
     Dosage: 30 OT, QD (EVENING)
     Route: 065

REACTIONS (30)
  - Blood pressure increased [Unknown]
  - Tonsillitis [Unknown]
  - Gastritis [Unknown]
  - Anxiety [Unknown]
  - Arteriosclerosis [Unknown]
  - Seasonal allergy [Unknown]
  - Benign prostatic hyperplasia [Unknown]
  - Product contamination [Unknown]
  - Emotional distress [Unknown]
  - Sleep disorder [Unknown]
  - Disturbance in attention [Unknown]
  - Insulin-requiring type 2 diabetes mellitus [Unknown]
  - Myocardial ischaemia [Unknown]
  - Renal impairment [Not Recovered/Not Resolved]
  - Fear [Unknown]
  - Pain [Unknown]
  - Nausea [Unknown]
  - Lipid metabolism disorder [Unknown]
  - Retching [Unknown]
  - Diarrhoea [Unknown]
  - Abdominal pain [Unknown]
  - Nephrolithiasis [Unknown]
  - Liver disorder [Unknown]
  - Dizziness [Unknown]
  - Renal failure [Unknown]
  - Thinking abnormal [Unknown]
  - Hepatic steatosis [Unknown]
  - Micturition disorder [Unknown]
  - Vomiting [Unknown]
  - Discomfort [Unknown]

NARRATIVE: CASE EVENT DATE: 201909
